FAERS Safety Report 10244092 (Version 1)
Quarter: 2014Q2

REPORT INFORMATION
  Report Type: Spontaneous
  Country: US (occurrence: None)
  Receive Date: 20140616
  Receipt Date: 20140616
  Transmission Date: 20141212
  Serious: No
  Sender: FDA-Public Use
  Company Number: None

PATIENT
  Age: 65 Year
  Sex: Male

DRUGS (1)
  1. TIKOSYN [Suspect]
     Indication: PRODUCT USED FOR UNKNOWN INDICATION
     Dosage: 250 MCG TWICE DAILY BY MOUTH
     Route: 048
     Dates: start: 20131210, end: 20140611

REACTIONS (2)
  - Flatulence [None]
  - Diarrhoea [None]
